FAERS Safety Report 9541445 (Version 1)
Quarter: 2013Q2

REPORT INFORMATION
  Report Type: Spontaneous
  Country: US (occurrence: None)
  Receive Date: 20130524
  Receipt Date: 20130524
  Transmission Date: 20140414
  Serious: No
  Sender: FDA-Public Use
  Company Number: PHEH2013US002346

PATIENT
  Sex: Female

DRUGS (5)
  1. GILENYA [Suspect]
     Indication: MULTIPLE SCLEROSIS
     Route: 048
     Dates: start: 20111110
  2. BACTRIM (SULFAMETHOXAZOLE , TRIMETHOPRIM) [Concomitant]
  3. SPIRONOLACTONE (SPIRONOLACTONE) [Concomitant]
  4. TEMAZEPAM (TEMAZEPAM) [Concomitant]
  5. XANAX (ALPRAZOLAM) [Concomitant]

REACTIONS (5)
  - Stress [None]
  - Sinus disorder [None]
  - Multiple sclerosis relapse [None]
  - Nasopharyngitis [None]
  - Oropharyngeal pain [None]
